FAERS Safety Report 5220892-6 (Version None)
Quarter: 2007Q1

REPORT INFORMATION
  Report Type: 
  Country: None (occurrence: None)
  Receive Date: 20070126
  Receipt Date: 20070117
  Transmission Date: 20070707
  Serious: Yes (Other)
  Sender: FDA-Public Use
  Company Number: ES-GLAXOSMITHKLINE-B0452441A

PATIENT
  Age: 36 Year
  Sex: Male

DRUGS (2)
  1. MALARONE [Suspect]
     Indication: PROPHYLAXIS
     Route: 048
     Dates: start: 20050901, end: 20050901
  2. RESOCHIN [Suspect]
     Indication: PROPHYLAXIS
     Route: 065
     Dates: start: 20000101, end: 20020101

REACTIONS (3)
  - HEADACHE [None]
  - MACULOPATHY [None]
  - VISUAL ACUITY REDUCED [None]
